FAERS Safety Report 22090887 (Version 7)
Quarter: 2024Q1

REPORT INFORMATION
  Report Type: Report from Study
  Country: CA (occurrence: CA)
  Receive Date: 20230314
  Receipt Date: 20240108
  Transmission Date: 20240410
  Serious: Yes (Other)
  Sender: FDA-Public Use
  Company Number: CA-JNJFOC-20230315808

PATIENT
  Age: 55 Year
  Sex: Male

DRUGS (2)
  1. STELARA [Suspect]
     Active Substance: USTEKINUMAB
     Indication: Crohn^s disease
     Route: 058
     Dates: start: 20180307
  2. STELARA [Suspect]
     Active Substance: USTEKINUMAB
     Dosage: EXPIRY DATE: 31-MAR-2026
     Route: 058

REACTIONS (11)
  - Dacryocystitis [Unknown]
  - Eye infection [Unknown]
  - Eczema [Not Recovered/Not Resolved]
  - Asthma [Not Recovered/Not Resolved]
  - Faeces soft [Unknown]
  - Pain [Not Recovered/Not Resolved]
  - Abdominal pain [Unknown]
  - Frequent bowel movements [Unknown]
  - Headache [Not Recovered/Not Resolved]
  - Diarrhoea [Unknown]
  - Drug ineffective [Unknown]

NARRATIVE: CASE EVENT DATE: 20230301
